FAERS Safety Report 7816371-X (Version None)
Quarter: 2011Q4

REPORT INFORMATION
  Report Type: 
  Country: None (occurrence: None)
  Receive Date: 20111017
  Receipt Date: 20111006
  Transmission Date: 20120403
  Serious: Yes (Hospitalization)
  Sender: FDA-Public Use
  Company Number: US-BIOGENIDEC-2011BI038301

PATIENT
  Age: 26 Year
  Sex: Female
  Weight: 69 kg

DRUGS (5)
  1. AVONEX [Suspect]
     Indication: MULTIPLE SCLEROSIS
     Dates: start: 20110808
  2. TRAMADOL HCL [Concomitant]
     Indication: NEURALGIA
     Dates: start: 20050101
  3. TRIND [Concomitant]
     Indication: NASAL CONGESTION
     Route: 048
     Dates: start: 20110921
  4. TRIND [Concomitant]
     Indication: OROPHARYNGEAL PAIN
     Route: 048
     Dates: start: 20110921
  5. DAILY MULTIVITAMIN [Concomitant]
     Indication: VITAMIN SUPPLEMENTATION
     Route: 048
     Dates: start: 20110101

REACTIONS (1)
  - MENINGITIS VIRAL [None]
